FAERS Safety Report 13920256 (Version 1)
Quarter: 2017Q3

REPORT INFORMATION
  Report Type: Spontaneous
  Country: US (occurrence: US)
  Receive Date: 20170830
  Receipt Date: 20170830
  Transmission Date: 20171127
  Serious: No
  Sender: FDA-Public Use
  Company Number: US-PFIZER INC-2017373818

PATIENT
  Age: 63 Year
  Sex: Female

DRUGS (1)
  1. IBRANCE [Suspect]
     Active Substance: PALBOCICLIB
     Indication: NEOPLASM
     Dosage: 100 MG, CYCLIC (EVERY DAY FOR DAYS 1-21 THEN 7 DAYS OFF)
     Route: 048
     Dates: start: 201707

REACTIONS (2)
  - Nausea [Unknown]
  - Fatigue [Unknown]
